FAERS Safety Report 9859444 (Version 3)
Quarter: 2014Q1

REPORT INFORMATION
  Report Type: Spontaneous
  Country: US (occurrence: US)
  Receive Date: 20140131
  Receipt Date: 20140314
  Transmission Date: 20141002
  Serious: No
  Sender: FDA-Public Use
  Company Number: US-PFIZER INC-2014027233

PATIENT
  Sex: Female

DRUGS (12)
  1. PROVERA [Suspect]
     Dosage: UNK
  2. LODINE [Suspect]
     Dosage: UNK
  3. SEPTRA [Suspect]
     Dosage: UNK
  4. TAGAMET [Suspect]
     Dosage: UNK
  5. CIPRO HC [Suspect]
     Dosage: UNK
  6. PEPCID [Suspect]
     Dosage: UNK
  7. LORTAB [Suspect]
     Dosage: UNK
  8. PERCOCET [Suspect]
     Dosage: UNK
  9. ZOCOR [Suspect]
     Dosage: UNK
  10. CODEINE [Suspect]
     Dosage: UNK
  11. TRAMADOL [Suspect]
     Dosage: UNK
  12. TYLENOL WITH CODEINE [Suspect]
     Dosage: UNK

REACTIONS (1)
  - Drug hypersensitivity [Unknown]
